FAERS Safety Report 9293051 (Version 1)
Quarter: 2013Q1

REPORT INFORMATION
  Report Type: Spontaneous
  Country: US (occurrence: None)
  Receive Date: 20121214
  Receipt Date: 20121214
  Transmission Date: 20140127
  Serious: Yes (Hospitalization)
  Sender: FDA-Public Use
  Company Number: 1203USA02016

PATIENT
  Age: 88 Year
  Sex: Male

DRUGS (3)
  1. FLOMAX ( TAMSULOSIN HYDROCHLORIDE) ( TAMSULOSIN HYDROCHLORIDE) [Concomitant]
  2. JANUVIA [Suspect]
     Route: 048
  3. MK-9378 ( METFORMIN) TABLET [Concomitant]

REACTIONS (1)
  - Renal failure [None]
